FAERS Safety Report 7681257-0 (Version None)
Quarter: 2011Q3

REPORT INFORMATION
  Report Type: 
  Country: None (occurrence: None)
  Receive Date: 20110812
  Receipt Date: 20110315
  Transmission Date: 20111222
  Serious: No
  Sender: FDA-Public Use
  Company Number: PHHY2011DE69784

PATIENT
  Sex: Female

DRUGS (7)
  1. IBUPROFEN [Concomitant]
     Dosage: 800 MG, UNK
  2. TASIGNA [Suspect]
     Dates: start: 20110311
  3. FORADIL [Concomitant]
  4. MAGNESIUM [Concomitant]
  5. THEOPHYLLINE [Concomitant]
  6. TRIAMTERENE AND HYDROCHLOROTHIAZIDE [Concomitant]
  7. LEVOTHYROXINE SODIUM [Concomitant]

REACTIONS (7)
  - GENERALISED ERYTHEMA [None]
  - BLISTER [None]
  - URTICARIA [None]
  - PRURITUS [None]
  - EYE IRRITATION [None]
  - BONE PAIN [None]
  - HYPOAESTHESIA [None]
